FAERS Safety Report 8148178-0 (Version None)
Quarter: 2012Q1

REPORT INFORMATION
  Report Type: 
  Country: None (occurrence: None)
  Receive Date: 20120218
  Receipt Date: 20110527
  Transmission Date: 20120608
  Serious: No
  Sender: FDA-Public Use
  Company Number: US-ALLERGAN-1104677US

PATIENT
  Age: 66 Year
  Sex: Female
  Weight: 53.515 kg

DRUGS (1)
  1. BOTOX COSMETIC [Suspect]
     Indication: SKIN WRINKLING
     Dosage: UNK
     Route: 030
     Dates: start: 20100101, end: 20100101

REACTIONS (2)
  - FACIAL PARESIS [None]
  - EYELID PTOSIS [None]
